FAERS Safety Report 4269140-4 (Version None)
Quarter: 2004Q1

REPORT INFORMATION
  Report Type: 
  Country: None (occurrence: None)
  Receive Date: 20040109
  Receipt Date: 20031223
  Transmission Date: 20041129
  Serious: Yes (Hospitalization)
  Sender: FDA-Public Use
  Company Number: KDL047715

PATIENT
  Age: 84 Year
  Sex: Male

DRUGS (6)
  1. PROCRIT [Suspect]
     Indication: ANAEMIA OF MALIGNANT DISEASE
     Dosage: 40000 U, WEEKLY, SC
     Route: 058
     Dates: start: 20030724
  2. PHENYTOIN SODIUM [Concomitant]
  3. CELECOXIB [Concomitant]
  4. FLUTICASONE/SALMETEROL [Concomitant]
  5. CETIRIZINE HYDROCHLORIDE [Concomitant]
  6. HYDROXYZINE [Concomitant]

REACTIONS (7)
  - ABDOMINAL MASS [None]
  - AZOTAEMIA [None]
  - BLOOD ALKALINE PHOSPHATASE INCREASED [None]
  - EYE PRURITUS [None]
  - LEUKAEMIC INFILTRATION HEPATIC [None]
  - PYREXIA [None]
  - RASH GENERALISED [None]
